FAERS Safety Report 8350348-3 (Version None)
Quarter: 2012Q2

REPORT INFORMATION
  Report Type: 
  Country: None (occurrence: None)
  Receive Date: 20120510
  Receipt Date: 20120503
  Transmission Date: 20120825
  Serious: Yes (Other)
  Sender: FDA-Public Use
  Company Number: US-BAYER-2012-044259

PATIENT
  Age: 30 Year
  Sex: Female

DRUGS (2)
  1. YAZ [Suspect]
     Dosage: UNK
     Dates: start: 20070801, end: 20110901
  2. YASMIN [Suspect]
     Dosage: UNK
     Dates: start: 20070801, end: 20110901

REACTIONS (6)
  - CHOLELITHIASIS [None]
  - ANXIETY [None]
  - PAIN [None]
  - EMOTIONAL DISTRESS [None]
  - INJURY [None]
  - PSYCHOLOGICAL TRAUMA [None]
